FAERS Safety Report 4801741-4 (Version None)
Quarter: 2005Q4

REPORT INFORMATION
  Report Type: 
  Country: None (occurrence: None)
  Receive Date: 20051014
  Receipt Date: 20051014
  Transmission Date: 20060501
  Serious: Yes (Disabling)
  Sender: FDA-Public Use
  Company Number: None

PATIENT
  Age: 60 Year
  Sex: Female
  Weight: 90.7194 kg

DRUGS (2)
  1. LEVAQUIN [Suspect]
     Indication: BRONCHITIS
     Dosage: 1 PER DAY    3 DAYS   PO
     Route: 048
     Dates: start: 20050915, end: 20050917
  2. LEVAQUIN [Suspect]
     Indication: PNEUMONIA
     Dosage: 1 PER DAY    3 DAYS   PO
     Route: 048
     Dates: start: 20050915, end: 20050917

REACTIONS (4)
  - DIFFICULTY IN WALKING [None]
  - INFLAMMATION [None]
  - PAIN [None]
  - TENDONITIS [None]
